FAERS Safety Report 5933139-X (Version None)
Quarter: 2008Q4

REPORT INFORMATION
  Report Type: 
  Country: None (occurrence: None)
  Receive Date: 20081028
  Receipt Date: 20081017
  Transmission Date: 20090506
  Serious: Yes (Hospitalization)
  Sender: FDA-Public Use
  Company Number: SE-JNJCH-2008052471

PATIENT
  Sex: Female

DRUGS (4)
  1. MAGNECYL [Suspect]
     Indication: ARTHRALGIA
     Dosage: TEXT:500 MG WHEN NECESSARY
     Route: 048
  2. DICLOFENAC [Suspect]
     Indication: CHOLELITHIASIS
     Dosage: TEXT:UNSPECIFIED DAILY
     Route: 054
     Dates: start: 20080902, end: 20080903
  3. RAMIPRIL [Suspect]
     Indication: DRUG USE FOR UNKNOWN INDICATION
     Dosage: TEXT:2.5 MG (FREQUENCY UNSPECIFIED)
     Route: 065
  4. CITALOPRAM HYDROBROMIDE [Suspect]
     Indication: DRUG USE FOR UNKNOWN INDICATION
     Dosage: TEXT:10 MG (FREQUENCY UNSPECIFIED)
     Route: 065

REACTIONS (3)
  - CHOLELITHIASIS [None]
  - GASTRIC ULCER [None]
  - HEPATIC CYST [None]
